FAERS Safety Report 9459747 (Version 3)
Quarter: 2013Q4

REPORT INFORMATION
  Report Type: Spontaneous
  Country: PT (occurrence: PT)
  Receive Date: 20130815
  Receipt Date: 20131029
  Transmission Date: 20140711
  Serious: Yes (Death)
  Sender: FDA-Public Use
  Company Number: PT-ASTELLAS-2013US008584

PATIENT
  Age: 42 Year
  Sex: Female

DRUGS (2)
  1. AMBISOME [Suspect]
     Indication: ZYGOMYCOSIS
     Dosage: 5 MG/KG, UID/QD
     Route: 065
  2. POSACONAZOLE [Concomitant]
     Indication: PRODUCT USED FOR UNKNOWN INDICATION
     Dosage: UNK
     Route: 065

REACTIONS (1)
  - Drug ineffective [Fatal]
